FAERS Safety Report 6634408-0 (Version None)
Quarter: 2010Q1

REPORT INFORMATION
  Report Type: 
  Country: None (occurrence: None)
  Receive Date: 20100311
  Receipt Date: 20100311
  Transmission Date: 20100710
  Serious: Yes (Other)
  Sender: FDA-Public Use
  Company Number: None

PATIENT
  Age: 35 Year
  Sex: Female

DRUGS (2)
  1. BUPROPION HCL [Suspect]
     Indication: SMOKING CESSATION THERAPY
     Dosage: 150MG BID PO
     Route: 048
     Dates: start: 20100212, end: 20100217
  2. VARENICLINE [Suspect]
     Indication: SMOKING CESSATION THERAPY
     Dosage: 0.5MG BID PO
     Route: 048
     Dates: start: 20100126, end: 20100212

REACTIONS (10)
  - AGGRESSION [None]
  - AGITATION [None]
  - CONFUSIONAL STATE [None]
  - CRYING [None]
  - EMOTIONAL DISORDER [None]
  - FEELING OF DESPAIR [None]
  - INSOMNIA [None]
  - MIGRAINE [None]
  - MOOD SWINGS [None]
  - TREMOR [None]
